FAERS Safety Report 25184568 (Version 1)
Quarter: 2025Q2

REPORT INFORMATION
  Report Type: Spontaneous
  Country: US (occurrence: None)
  Receive Date: 20250410
  Receipt Date: 20250410
  Transmission Date: 20250716
  Serious: Yes (Death)
  Sender: FDA-CTU
  Company Number: None

PATIENT
  Age: 69 Year
  Sex: Male

DRUGS (1)
  1. PAZOPANIB [Suspect]
     Active Substance: PAZOPANIB
     Indication: Connective tissue neoplasm
     Dosage: FREQUENCY : DAILY;?

REACTIONS (1)
  - Death [None]

NARRATIVE: CASE EVENT DATE: 20250409
